FAERS Safety Report 4357027-8 (Version None)
Quarter: 2004Q2

REPORT INFORMATION
  Report Type: 
  Country: None (occurrence: None)
  Receive Date: 20040510
  Receipt Date: 20040427
  Transmission Date: 20050107
  Serious: Yes (Death, Life-Threatening, Hospitalization)
  Sender: FDA-Public Use
  Company Number: DE-JNJFOC-20031204277

PATIENT
  Age: 87 Year
  Sex: Male

DRUGS (40)
  1. LEVOFLOXACIN [Suspect]
     Indication: PNEUMONIA
     Dosage: INTRAVENOUS
     Route: 042
     Dates: start: 20031201, end: 20031203
  2. LEVOFLOXACIN [Suspect]
     Indication: PNEUMONIA
     Dosage: ORAL
     Route: 048
     Dates: start: 20031204, end: 20031210
  3. ENOXAPARIN SODIUM [Suspect]
     Indication: DRUG USE FOR UNKNOWN INDICATION
     Dosage: SEE IMAGE
     Dates: start: 20031204, end: 20031204
  4. ENOXAPARIN SODIUM [Suspect]
     Indication: DRUG USE FOR UNKNOWN INDICATION
     Dosage: SEE IMAGE
     Dates: start: 20031205, end: 20031205
  5. ENOXAPARIN SODIUM [Suspect]
     Indication: DRUG USE FOR UNKNOWN INDICATION
     Dosage: SEE IMAGE
     Dates: start: 20031206, end: 20031206
  6. ENOXAPARIN SODIUM [Suspect]
     Indication: DRUG USE FOR UNKNOWN INDICATION
     Dosage: SEE IMAGE
     Dates: start: 20031207, end: 20031207
  7. ENOXAPARIN SODIUM [Suspect]
     Indication: DRUG USE FOR UNKNOWN INDICATION
     Dosage: SEE IMAGE
     Dates: start: 20031208, end: 20031208
  8. ENOXAPARIN SODIUM [Suspect]
     Indication: DRUG USE FOR UNKNOWN INDICATION
     Dosage: SEE IMAGE
     Dates: start: 20031209, end: 20031209
  9. HYDROCHLOROTHIAZIDE [Concomitant]
  10. COUMADIN [Concomitant]
  11. DIGOXIN [Concomitant]
  12. ACTOS (PIOGLITAZONE) [Concomitant]
  13. GLUCOTROL XL [Concomitant]
  14. PAXIL [Concomitant]
  15. LASIX [Concomitant]
  16. FLOMAX [Concomitant]
  17. MULTIVITAMIN [Concomitant]
  18. VITAMIN E [Concomitant]
  19. SENNA LAXATIVE (SENNA) [Concomitant]
  20. LANTUS [Concomitant]
  21. INSULIN [Concomitant]
  22. ALBUTEROL [Concomitant]
  23. ATROVENT [Concomitant]
  24. CARDIZEM [Concomitant]
  25. TYLENOL [Concomitant]
  26. ASPIRIN [Concomitant]
  27. LANOXIN [Concomitant]
  28. HYDROCHLOROTHIAZIDE [Concomitant]
  29. TRIAMTERENE (TRIAMTERENE) [Concomitant]
  30. PREVACID [Concomitant]
  31. MUCOMYST [Concomitant]
  32. SINEMET [Concomitant]
  33. AMMONIUM LACTATE (AMMONIUM LACTATE) [Concomitant]
  34. NYSTATIN [Concomitant]
  35. DARVOCET [Concomitant]
  36. MAGNESIUM CITRATE (MAGNESIUM CITRATE) [Concomitant]
  37. DULCOLAX [Concomitant]
  38. MORPHINE SULFATE [Concomitant]
  39. MAXIDE (DYAZIDE) [Concomitant]
  40. LOVENOX [Concomitant]

REACTIONS (6)
  - ACUTE MYOCARDIAL INFARCTION [None]
  - ACUTE RESPIRATORY FAILURE [None]
  - BLOOD CREATINE PHOSPHOKINASE INCREASED [None]
  - CHRONIC OBSTRUCTIVE AIRWAYS DISEASE EXACERBATED [None]
  - GASTROINTESTINAL HAEMORRHAGE [None]
  - RECTAL HAEMORRHAGE [None]
